FAERS Safety Report 5623440-1 (Version None)
Quarter: 2008Q1

REPORT INFORMATION
  Report Type: 
  Country: None (occurrence: None)
  Receive Date: 20080212
  Receipt Date: 20080205
  Transmission Date: 20080703
  Serious: Yes (Other)
  Sender: FDA-Public Use
  Company Number: FR-ALLERGAN-0801450US

PATIENT
  Sex: Female

DRUGS (3)
  1. ALPHAGAN [Suspect]
     Indication: DRUG USE FOR UNKNOWN INDICATION
     Route: 047
  2. DUOTRAV [Concomitant]
     Route: 047
  3. SUVEAL DUO [Concomitant]
     Route: 048

REACTIONS (2)
  - AGEUSIA [None]
  - ANOSMIA [None]
